FAERS Safety Report 9189200 (Version 1)
Quarter: 2013Q1

REPORT INFORMATION
  Report Type: Spontaneous
  Country: US (occurrence: None)
  Receive Date: 20130322
  Receipt Date: 20130322
  Transmission Date: 20140127
  Serious: Yes (Death)
  Sender: FDA-Public Use
  Company Number: 20130006

PATIENT
  Age: 67 Year
  Sex: Male

DRUGS (2)
  1. SUBSYS [Suspect]
     Indication: CANCER PAIN
     Dosage: 400MCG UP TO 8 PER DAY
     Dates: start: 20130121, end: 20130306
  2. SUBSYS [Suspect]
     Indication: COLON CANCER
     Dosage: 400MCG UP TO 8 PER DAY
     Dates: start: 20130121, end: 20130306

REACTIONS (1)
  - Death [None]
